FAERS Safety Report 5962191-0 (Version None)
Quarter: 2008Q4

REPORT INFORMATION
  Report Type: 
  Country: None (occurrence: None)
  Receive Date: 20081119
  Receipt Date: 20080722
  Transmission Date: 20090506
  Serious: No
  Sender: FDA-Public Use
  Company Number: WAES 0808USA02120

PATIENT
  Age: 69 Year
  Sex: Female
  Weight: 68.9467 kg

DRUGS (6)
  1. JANUVIA [Suspect]
     Indication: DIABETES MELLITUS
     Dosage: 100 MG/DAILY/PO
     Route: 048
  2. HUMALOG [Concomitant]
  3. K-DUR [Concomitant]
  4. LANTUS [Concomitant]
  5. CYANOCOBALAMIN [Concomitant]
  6. METFORMIN [Concomitant]

REACTIONS (2)
  - EXFOLIATIVE RASH [None]
  - PHOTOSENSITIVITY REACTION [None]
